FAERS Safety Report 8046588-3 (Version None)
Quarter: 2012Q1

REPORT INFORMATION
  Report Type: 
  Country: None (occurrence: None)
  Receive Date: 20120113
  Receipt Date: 20120109
  Transmission Date: 20120608
  Serious: Yes (Death)
  Sender: FDA-Public Use
  Company Number: KH-ROCHE-1028742

PATIENT
  Age: 4 Year
  Sex: Female
  Weight: 13 kg

DRUGS (16)
  1. LACTATED RINGER'S [Concomitant]
     Dates: start: 20110718, end: 20110720
  2. LASIX [Concomitant]
     Dates: start: 20110331, end: 20110331
  3. LACTATED RINGER'S [Concomitant]
     Indication: PRODUCT USED FOR UNKNOWN INDICATION
     Dates: start: 20110714, end: 20110717
  4. LACTATED RINGER'S [Concomitant]
     Dates: start: 20110329, end: 20110330
  5. ROCEPHIN [Suspect]
     Dates: start: 20110329, end: 20110330
  6. ROCEPHIN [Suspect]
     Dates: start: 20110331, end: 20110331
  7. ROCEPHIN [Suspect]
     Indication: PRODUCT USED FOR UNKNOWN INDICATION
     Dates: start: 20110713, end: 20110720
  8. ROCEPHIN [Suspect]
     Dates: start: 20110718, end: 20110720
  9. NOVALGIN [Concomitant]
     Indication: PRODUCT USED FOR UNKNOWN INDICATION
     Dates: start: 20110714, end: 20110715
  10. KONAKION [Concomitant]
     Indication: PRODUCT USED FOR UNKNOWN INDICATION
     Dates: start: 20110718, end: 20110719
  11. MANDOL [Concomitant]
     Dates: start: 20110331, end: 20110331
  12. ACETAMINOPHEN [Concomitant]
     Indication: PRODUCT USED FOR UNKNOWN INDICATION
     Dates: start: 20110718, end: 20110719
  13. LASIX [Concomitant]
     Indication: PRODUCT USED FOR UNKNOWN INDICATION
     Dates: start: 20110719, end: 20110720
  14. MANDOL [Concomitant]
     Indication: PRODUCT USED FOR UNKNOWN INDICATION
     Dates: start: 20110719, end: 20110720
  15. DEXTROSE [Concomitant]
     Indication: PRODUCT USED FOR UNKNOWN INDICATION
  16. CIMETIDINE [Concomitant]
     Indication: PRODUCT USED FOR UNKNOWN INDICATION

REACTIONS (6)
  - RESPIRATORY FAILURE [None]
  - ACUTE RESPIRATORY DISTRESS SYNDROME [None]
  - MULTI-ORGAN FAILURE [None]
  - SEPSIS [None]
  - PNEUMONIA [None]
  - INFLUENZA [None]
